FAERS Safety Report 8173667-2 (Version None)
Quarter: 2012Q1

REPORT INFORMATION
  Report Type: 
  Country: None (occurrence: None)
  Receive Date: 20120229
  Receipt Date: 20120223
  Transmission Date: 20120608
  Serious: No
  Sender: FDA-Public Use
  Company Number: US-BAYER-2012-018441

PATIENT
  Age: 101 Year
  Sex: Male

DRUGS (2)
  1. CIPRO [Suspect]
     Indication: PURULENT DISCHARGE
     Dosage: 250 MG, BID
     Route: 048
     Dates: start: 20120217
  2. CIPRO [Suspect]
     Indication: EAR INFECTION

REACTIONS (1)
  - OTORRHOEA [None]
